FAERS Safety Report 23636500 (Version 5)
Quarter: 2024Q2

REPORT INFORMATION
  Report Type: Spontaneous
  Country: US (occurrence: US)
  Receive Date: 20240315
  Receipt Date: 20240430
  Transmission Date: 20240715
  Serious: No
  Sender: FDA-Public Use
  Company Number: US-PFIZER INC-PV202400011961

PATIENT
  Age: 12 Year
  Sex: Female

DRUGS (3)
  1. GENOTROPIN [Suspect]
     Active Substance: SOMATROPIN
     Dosage: 2.5 MG, DAILY
  2. GENOTROPIN [Suspect]
     Active Substance: SOMATROPIN
     Dosage: ALTERATING 2.4 MG + 2.6 MG DAILY
  3. GENOTROPIN [Suspect]
     Active Substance: SOMATROPIN
     Dosage: ALTERATING 2.4 MG + 2.6 MG DAILY

REACTIONS (5)
  - Device use issue [Unknown]
  - Product prescribing error [Unknown]
  - Drug dose omission by device [Unknown]
  - Device leakage [Unknown]
  - Device information output issue [Unknown]
